FAERS Safety Report 7562676-X (Version None)
Quarter: 2011Q2

REPORT INFORMATION
  Report Type: 
  Country: None (occurrence: None)
  Receive Date: 20110622
  Receipt Date: 20110613
  Transmission Date: 20111010
  Serious: Yes (Hospitalization)
  Sender: FDA-Public Use
  Company Number: CA-BRISTOL-MYERS SQUIBB COMPANY-14438790

PATIENT
  Age: 87 Year
  Sex: Male

DRUGS (2)
  1. PLACEBO [Suspect]
     Indication: THROMBOSIS PROPHYLAXIS
     Dosage: DRUG INTERRUPTED ON 11FEB09
     Route: 048
     Dates: start: 20080905
  2. WARFARIN SODIUM [Suspect]
     Indication: THROMBOSIS PROPHYLAXIS
     Dosage: DOSE IS INR DEPENDENT; 26OCT08 TO05JAN09, THEN 19-24JAN09, THEN 29JAN09-11FEB09
     Route: 048
     Dates: start: 20080905

REACTIONS (1)
  - BENIGN PROSTATIC HYPERPLASIA [None]
